FAERS Safety Report 23803637 (Version 1)
Quarter: 2024Q2

REPORT INFORMATION
  Report Type: Report from Study
  Country: NL (occurrence: NL)
  Receive Date: 20240501
  Receipt Date: 20240501
  Transmission Date: 20240715
  Serious: Yes (Other)
  Sender: FDA-Public Use
  Company Number: NL-VER-202400033

PATIENT
  Sex: Male

DRUGS (3)
  1. TRIPTORELIN PAMOATE [Suspect]
     Active Substance: TRIPTORELIN PAMOATE
     Indication: Prostate cancer
     Dosage: SUSPENSION FOR INJECTION, 1.00 X PER 3 MONTHS
     Route: 030
     Dates: start: 20231019
  2. TRIPTORELIN PAMOATE [Suspect]
     Active Substance: TRIPTORELIN PAMOATE
     Indication: Prostate cancer
     Dosage: SUSPENSION FOR INJECTION,1.00 X PER 3 MONTHS
     Route: 030
     Dates: start: 20221228
  3. TRIPTORELIN PAMOATE [Suspect]
     Active Substance: TRIPTORELIN PAMOATE
     Indication: Prostate cancer
     Dosage: SUSPENSION FOR INJECTION,1.00 X PER 3 MONTHS
     Route: 030
     Dates: start: 20240120

REACTIONS (1)
  - Terminal state [Unknown]
